FAERS Safety Report 9682261 (Version 2)
Quarter: 2013Q4

REPORT INFORMATION
  Report Type: Spontaneous
  Country: AT (occurrence: AT)
  Receive Date: 20131112
  Receipt Date: 20131122
  Transmission Date: 20140711
  Serious: Yes (Life-Threatening, Other)
  Sender: FDA-Public Use
  Company Number: AT-AMGEN-AUTSP2013078416

PATIENT
  Age: 70 Year
  Sex: Male

DRUGS (3)
  1. ARANESP [Suspect]
     Indication: NEPHROGENIC ANAEMIA
     Route: 058
  2. EPOETIN THETA [Concomitant]
     Route: 058
  3. EPOETIN BETA [Concomitant]
     Route: 058

REACTIONS (3)
  - Aplasia pure red cell [Unknown]
  - Anti-erythropoietin antibody positive [Unknown]
  - Peritonitis bacterial [Unknown]
